FAERS Safety Report 4688287-1 (Version None)
Quarter: 2005Q2

REPORT INFORMATION
  Report Type: 
  Country: None (occurrence: None)
  Receive Date: 20050610
  Receipt Date: 20050310
  Transmission Date: 20051028
  Serious: Yes (Hospitalization)
  Sender: FDA-Public Use
  Company Number: US-MERCK-0503USA02372

PATIENT
  Age: 68 Year
  Sex: Female
  Weight: 73 kg

DRUGS (19)
  1. VIOXX [Suspect]
     Indication: ARTHRITIS
     Route: 048
     Dates: start: 20000801, end: 20020101
  2. PAXIL [Concomitant]
     Route: 065
  3. BUSPAR [Concomitant]
     Route: 065
  4. MEVACOR [Concomitant]
     Route: 048
  5. SYNTHROID [Concomitant]
     Route: 065
  6. NEURONTIN [Concomitant]
     Route: 065
  7. TRAZODONE HYDROCHLORIDE [Concomitant]
     Route: 065
  8. ISOSORBIDE [Concomitant]
     Route: 065
  9. CARTIA XT [Concomitant]
     Route: 065
  10. NITRO [Concomitant]
     Route: 065
  11. ALBUTEROL [Concomitant]
     Route: 065
  12. ZITHROMAX [Concomitant]
     Route: 065
  13. CIPRO [Concomitant]
     Route: 065
  14. PRILOSEC [Concomitant]
     Route: 048
  15. LIPITOR [Concomitant]
     Route: 065
  16. AMOXICILLIN [Concomitant]
     Route: 065
  17. TAMIFLU [Concomitant]
     Route: 065
  18. DICYCLOMINE HYDROCHLORIDE [Concomitant]
     Route: 065
  19. ALLEGRA [Concomitant]
     Route: 065

REACTIONS (25)
  - ANGINA UNSTABLE [None]
  - AORTIC STENOSIS [None]
  - ASTHMA [None]
  - ATRIAL FIBRILLATION [None]
  - ATRIOVENTRICULAR BLOCK FIRST DEGREE [None]
  - CHEST INJURY [None]
  - CORONARY ARTERY DISEASE [None]
  - DYSPEPSIA [None]
  - DYSPNOEA [None]
  - EMOTIONAL DISTRESS [None]
  - FALL [None]
  - GASTRITIS [None]
  - GOUT [None]
  - HYPERTENSION [None]
  - LOW DENSITY LIPOPROTEIN INCREASED [None]
  - MUSCLE SPASMS [None]
  - MUSCULOSKELETAL CHEST PAIN [None]
  - MYOCARDIAL INFARCTION [None]
  - PRODUCTIVE COUGH [None]
  - SKIN EXFOLIATION [None]
  - STERNAL INJURY [None]
  - SUPRAVENTRICULAR EXTRASYSTOLES [None]
  - THROMBOSIS [None]
  - VENTRICULAR EXTRASYSTOLES [None]
  - WEIGHT INCREASED [None]
